FAERS Safety Report 19176779 (Version 2)
Quarter: 2021Q2

REPORT INFORMATION
  Report Type: Spontaneous
  Country: US (occurrence: US)
  Receive Date: 20210424
  Receipt Date: 20210512
  Transmission Date: 20210717
  Serious: No
  Sender: FDA-Public Use
  Company Number: US-JNJFOC-20210426646

PATIENT
  Age: 40 Year
  Sex: Female
  Weight: 77.18 kg

DRUGS (1)
  1. MENS ROGAINE EXTRA STRENGTH [Suspect]
     Active Substance: MINOXIDIL
     Indication: ALOPECIA
     Dosage: JUST FOLLOWED THE DIRECTION ON LABEL ONCE A DAY?PRODUCT STOP DATE? 16/MAR/2021
     Route: 061
     Dates: start: 20210103

REACTIONS (3)
  - Intentional product misuse [Unknown]
  - Alopecia [Unknown]
  - Product use issue [Unknown]

NARRATIVE: CASE EVENT DATE: 2021
